FAERS Safety Report 14376221 (Version 4)
Quarter: 2019Q2

REPORT INFORMATION
  Report Type: Spontaneous
  Country: DK (occurrence: DK)
  Receive Date: 20180111
  Receipt Date: 20190404
  Transmission Date: 20190711
  Serious: Yes (Other)
  Sender: FDA-Public Use
  Company Number: DK-MYLANLABS-2018M1001796

PATIENT
  Sex: Female

DRUGS (5)
  1. L-ARGININE                         /00126101/ [Concomitant]
     Active Substance: ARGININE
     Indication: CEREBROVASCULAR ACCIDENT
  2. LEVETIRACETAM. [Suspect]
     Active Substance: LEVETIRACETAM
     Indication: CEREBROVASCULAR ACCIDENT
  3. LACOSAMIDE. [Suspect]
     Active Substance: LACOSAMIDE
     Indication: GENERALISED TONIC-CLONIC SEIZURE
  4. LEVETIRACETAM. [Suspect]
     Active Substance: LEVETIRACETAM
     Indication: EPILEPSY
     Dosage: UNK
  5. L-ARGININE                         /00126101/ [Concomitant]
     Active Substance: ARGININE
     Indication: EPILEPSY
     Dosage: UNK

REACTIONS (2)
  - Psychotic disorder [Recovering/Resolving]
  - Generalised tonic-clonic seizure [Unknown]
